FAERS Safety Report 4382477-3 (Version None)
Quarter: 2004Q2

REPORT INFORMATION
  Report Type: 
  Country: None (occurrence: None)
  Receive Date: 20040621
  Receipt Date: 20040621
  Transmission Date: 20050107
  Serious: Yes (Other)
  Sender: FDA-Public Use
  Company Number: None

PATIENT
  Age: 62 Year
  Sex: Female
  Weight: 90.7194 kg

DRUGS (1)
  1. TAXOL [Suspect]

REACTIONS (3)
  - CORONARY ARTERY PERFORATION [None]
  - IATROGENIC INJURY [None]
  - MEDICAL DEVICE COMPLICATION [None]
